FAERS Safety Report 9718126 (Version 1)
Quarter: 2013Q4

REPORT INFORMATION
  Report Type: Spontaneous
  Country: US (occurrence: US)
  Receive Date: 20131125
  Receipt Date: 20131125
  Transmission Date: 20140711
  Serious: No
  Sender: FDA-Public Use
  Company Number: US-VIVUS-2013V1000500

PATIENT
  Age: 62 Year
  Sex: Female
  Weight: 125.76 kg

DRUGS (4)
  1. QSYMIA 3.75MG/23MG [Suspect]
     Indication: WEIGHT DECREASED
     Route: 048
     Dates: start: 201305
  2. HYZAAR [Concomitant]
     Indication: BLOOD PRESSURE
     Dosage: 50/12.4 MG
     Route: 048
     Dates: start: 2006
  3. GLIMEPIRIDE [Concomitant]
     Indication: BLOOD GLUCOSE ABNORMAL
     Route: 048
     Dates: start: 2013
  4. OMEPRAZOLE DR [Concomitant]
     Indication: GASTROOESOPHAGEAL REFLUX DISEASE
     Route: 048
     Dates: start: 2012

REACTIONS (1)
  - Blood pressure decreased [Recovered/Resolved]
